FAERS Safety Report 14753605 (Version 2)
Quarter: 2018Q4

REPORT INFORMATION
  Report Type: Spontaneous
  Country: US (occurrence: US)
  Receive Date: 20180412
  Receipt Date: 20181011
  Transmission Date: 20190204
  Serious: No
  Sender: FDA-Public Use
  Company Number: US-VIFOR (INTERNATIONAL) INC.-VIT-2018-02873

PATIENT
  Age: 69 Year
  Sex: Male
  Weight: 88.5 kg

DRUGS (1)
  1. MIRCERA [Suspect]
     Active Substance: METHOXY POLYETHYLENE GLYCOL-EPOETIN BETA
     Indication: PRODUCT USED FOR UNKNOWN INDICATION
     Dosage: FIRST DOSE
     Route: 040
     Dates: start: 20180310, end: 20180310

REACTIONS (7)
  - Dyspnoea [Recovered/Resolved]
  - Throat tightness [Unknown]
  - Hypersensitivity [Unknown]
  - Chest discomfort [Unknown]
  - Heart rate increased [Recovered/Resolved]
  - Flushing [Recovered/Resolved]
  - Palpitations [Recovered/Resolved]

NARRATIVE: CASE EVENT DATE: 20180310
